FAERS Safety Report 5200100-2 (Version None)
Quarter: 2007Q1

REPORT INFORMATION
  Report Type: 
  Country: None (occurrence: None)
  Receive Date: 20070105
  Receipt Date: 20061228
  Transmission Date: 20070707
  Serious: Yes (Other)
  Sender: FDA-Public Use
  Company Number: NL-GLAXOSMITHKLINE-B0449852A

PATIENT
  Age: 67 Year
  Sex: Female

DRUGS (1)
  1. FLUTICASONE PROPIONATE [Suspect]
     Dates: start: 20061107

REACTIONS (3)
  - DEVICE MALFUNCTION [None]
  - NASAL MUCOSAL DISORDER [None]
  - PHARMACEUTICAL PRODUCT COMPLAINT [None]
